FAERS Safety Report 5464096-0 (Version None)
Quarter: 2007Q3

REPORT INFORMATION
  Report Type: 
  Country: None (occurrence: None)
  Receive Date: 20070921
  Receipt Date: 20070917
  Transmission Date: 20080115
  Serious: Yes (Death)
  Sender: FDA-Public Use
  Company Number: PHFR2007GB02563

PATIENT
  Age: 56 Year
  Sex: Female

DRUGS (3)
  1. CLOZARIL [Suspect]
     Indication: SCHIZOPHRENIA
     Dosage: 400MG/DAY
     Route: 048
     Dates: start: 19960418
  2. LITHIUM CARBONATE [Concomitant]
     Indication: AFFECTIVE DISORDER
     Dosage: 600MG/DAY
     Route: 048
  3. BENZHEXOL [Concomitant]
     Indication: SALIVARY HYPERSECRETION
     Dosage: 9MG/DAY
     Route: 048

REACTIONS (4)
  - ACUTE ABDOMEN [None]
  - HEPATIC NEOPLASM MALIGNANT [None]
  - PNEUMONIA [None]
  - SURGERY [None]
